FAERS Safety Report 12094760 (Version 2)
Quarter: 2016Q1

REPORT INFORMATION
  Report Type: Spontaneous
  Country: US (occurrence: US)
  Receive Date: 20160219
  Receipt Date: 20160219
  Transmission Date: 20160526
  Serious: Yes (Other)
  Sender: FDA-Public Use
  Company Number: US-APOTEX-2016AP006613

PATIENT

DRUGS (5)
  1. CLOPIDOGREL [Interacting]
     Active Substance: CLOPIDOGREL BISULFATE
     Indication: CORONARY ARTERY DISEASE
     Dosage: UNK UNK, UNKNOWN
     Route: 065
  2. HEPARIN [Suspect]
     Active Substance: HEPARIN SODIUM
     Indication: ANTICOAGULANT THERAPY
     Dosage: UNK, UNKNOWN
     Route: 065
  3. BIVALIRUDIN. [Concomitant]
     Active Substance: BIVALIRUDIN
     Indication: HEPARIN-INDUCED THROMBOCYTOPENIA
     Dosage: UNK, UNKNOWN
     Route: 042
  4. APIXABAN [Suspect]
     Active Substance: APIXABAN
     Indication: HEPARIN-INDUCED THROMBOCYTOPENIA
     Dosage: UNK UNK, UNKNOWN
     Route: 048
  5. ARGATROBAN. [Concomitant]
     Active Substance: ARGATROBAN
     Indication: HEPARIN-INDUCED THROMBOCYTOPENIA
     Dosage: UNK UNK, UNKNOWN
     Route: 042

REACTIONS (2)
  - Gastrointestinal haemorrhage [Unknown]
  - Heparin-induced thrombocytopenia [Unknown]
